FAERS Safety Report 25318270 (Version 1)
Quarter: 2025Q2

REPORT INFORMATION
  Report Type: Spontaneous
  Country: KR (occurrence: KR)
  Receive Date: 20250515
  Receipt Date: 20250515
  Transmission Date: 20250716
  Serious: Yes (Hospitalization, Other)
  Sender: Vantive US Healthcare
  Company Number: KR-VANTIVE-2025VAN002156

PATIENT
  Age: 76 Year
  Sex: Male

DRUGS (1)
  1. CALCIUM CHLORIDE\DEXTROSE\MAGNESIUM CHLORIDE\SODIUM CHLORIDE [Suspect]
     Active Substance: CALCIUM CHLORIDE\DEXTROSE\MAGNESIUM CHLORIDE\SODIUM CHLORIDE
     Route: 033

REACTIONS (2)
  - Pericardial effusion [Recovering/Resolving]
  - Ultrafiltration failure [Unknown]

NARRATIVE: CASE EVENT DATE: 20250502
